FAERS Safety Report 9788068 (Version 1)
Quarter: 2013Q4

REPORT INFORMATION
  Report Type: Spontaneous
  Country: US (occurrence: None)
  Receive Date: 20131227
  Receipt Date: 20131227
  Transmission Date: 20140711
  Serious: Yes (Hospitalization)
  Sender: FDA-Public Use
  Company Number: None

PATIENT
  Age: 52 Year
  Sex: Male
  Weight: 136 kg

DRUGS (13)
  1. ARGATROBAN [Suspect]
     Indication: DEVICE OCCLUSION
  2. WARFARIN [Suspect]
     Indication: DEVICE OCCLUSION
  3. HEPARIN [Suspect]
  4. PANTOPRAZOLE [Concomitant]
  5. MORPHINE [Concomitant]
  6. HYDRALAZINE [Concomitant]
  7. XANAX [Concomitant]
  8. VIT E+C [Concomitant]
  9. FISH OIL [Concomitant]
  10. TRAZODONE [Concomitant]
  11. METOPROLOL [Concomitant]
  12. HYDROCODONE/APAP [Concomitant]
  13. HCTZ/LOSARTAN [Concomitant]

REACTIONS (4)
  - Heparin resistance [None]
  - Retroperitoneal haematoma [None]
  - Renal failure acute [None]
  - Wound haemorrhage [None]
